FAERS Safety Report 19660084 (Version 1)
Quarter: 2021Q3

REPORT INFORMATION
  Report Type: Spontaneous
  Country: JP (occurrence: JP)
  Receive Date: 20210805
  Receipt Date: 20210805
  Transmission Date: 20211014
  Serious: Yes (Other)
  Sender: FDA-Public Use
  Company Number: JP-JNJFOC-20210743551

PATIENT
  Age: 38 Year
  Sex: Female

DRUGS (10)
  1. REMICADE [Suspect]
     Active Substance: INFLIXIMAB
     Dosage: 240 MILLIGRAM, QD
     Route: 042
     Dates: start: 20210525, end: 20210706
  2. IMURAN [Concomitant]
     Active Substance: AZATHIOPRINE
     Indication: CROHN^S DISEASE
     Dosage: UNK
     Route: 048
     Dates: end: 20200520
  3. REMICADE [Suspect]
     Active Substance: INFLIXIMAB
     Dosage: 240 MILLIGRAM, QD
     Route: 042
     Dates: start: 20210427, end: 20210427
  4. REMICADE [Suspect]
     Active Substance: INFLIXIMAB
     Dosage: 200 MILLIGRAM, QD
     Route: 042
     Dates: start: 20200430, end: 20200430
  5. PENTASA [Concomitant]
     Active Substance: MESALAMINE
     Indication: CROHN^S DISEASE
     Dosage: 3000 MILLIGRAM, QD
     Route: 048
  6. REMICADE [Suspect]
     Active Substance: INFLIXIMAB
     Indication: CROHN^S DISEASE
     Dosage: 220 MILLIGRAM, QD
     Route: 042
     Dates: start: 20191119, end: 20191213
  7. REMICADE [Suspect]
     Active Substance: INFLIXIMAB
     Dosage: 240 MILLIGRAM, QD
     Route: 042
     Dates: start: 20201118, end: 20210317
  8. REMICADE [Suspect]
     Active Substance: INFLIXIMAB
     Dosage: 200 MILLIGRAM, QD
     Route: 042
     Dates: start: 20200109, end: 20200305
  9. REMICADE [Suspect]
     Active Substance: INFLIXIMAB
     Dosage: 200 MILLIGRAM, QD
     Route: 042
     Dates: start: 20200625, end: 20201007
  10. PENTASA [Concomitant]
     Active Substance: MESALAMINE
     Dosage: 1500 MILLIGRAM, QD
     Route: 048
     Dates: start: 20210706

REACTIONS (3)
  - Maternal exposure during pregnancy [Unknown]
  - Maternal exposure during breast feeding [Unknown]
  - Foetal death [Unknown]

NARRATIVE: CASE EVENT DATE: 2020
